FAERS Safety Report 26189472 (Version 1)
Quarter: 2025Q4

REPORT INFORMATION
  Report Type: Spontaneous
  Country: US (occurrence: US)
  Receive Date: 20251223
  Receipt Date: 20251223
  Transmission Date: 20260118
  Serious: Yes (Other)
  Sender: HIKMA
  Company Number: US-HIKMA PHARMACEUTICALS USA INC.-US-H14001-25-13073

PATIENT
  Sex: Male

DRUGS (6)
  1. AMIKACIN [Suspect]
     Active Substance: AMIKACIN
     Indication: Mycobacterial disease carrier
     Dosage: UNKNOWN
  2. AMIKACIN [Suspect]
     Active Substance: AMIKACIN
     Indication: Mycobacterial infection
  3. LINEZOLID [Suspect]
     Active Substance: LINEZOLID
     Indication: Mycobacterial disease carrier
     Dosage: UNKNOWN
     Route: 065
  4. LINEZOLID [Suspect]
     Active Substance: LINEZOLID
     Indication: Mycobacterial infection
  5. AMIKACIN [Suspect]
     Active Substance: AMIKACIN
     Indication: Mycobacterial disease carrier
     Dosage: UNKNOWN (INHALED)
  6. AMIKACIN [Suspect]
     Active Substance: AMIKACIN
     Indication: Mycobacterial infection

REACTIONS (1)
  - Pathogen resistance [Unknown]
